FAERS Safety Report 16296218 (Version 4)
Quarter: 2019Q4

REPORT INFORMATION
  Report Type: Report from Study
  Country: GB (occurrence: GB)
  Receive Date: 20190509
  Receipt Date: 20191219
  Transmission Date: 20200122
  Serious: Yes (Hospitalization)
  Sender: FDA-Public Use
  Company Number: PHHY2019GB105395

PATIENT
  Age: 59 Year
  Sex: Male
  Weight: 84.9 kg

DRUGS (4)
  1. COSENTYX [Suspect]
     Active Substance: SECUKINUMAB
     Dosage: 150 MG, QW4
     Route: 058
     Dates: start: 20170207, end: 20190213
  2. COSENTYX [Suspect]
     Active Substance: SECUKINUMAB
     Dosage: 150 MG, QMO (PRE-FILLED PEN)
     Route: 058
  3. COSENTYX [Suspect]
     Active Substance: SECUKINUMAB
     Indication: PSORIATIC ARTHROPATHY
     Dosage: 150 MG, QMO
     Route: 065
  4. COSENTYX [Suspect]
     Active Substance: SECUKINUMAB
     Dosage: UNK
     Route: 065
     Dates: start: 20190922

REACTIONS (4)
  - Brain injury [Not Recovered/Not Resolved]
  - Fall [Recovering/Resolving]
  - Subdural haematoma [Recovering/Resolving]
  - Brain contusion [Recovering/Resolving]

NARRATIVE: CASE EVENT DATE: 20190213
